FAERS Safety Report 10079461 (Version 2)
Quarter: 2014Q2

REPORT INFORMATION
  Report Type: Report from Study
  Country: PH (occurrence: PH)
  Receive Date: 20140415
  Receipt Date: 20140415
  Transmission Date: 20141212
  Serious: Yes (Other)
  Sender: FDA-Public Use
  Company Number: PH-BRISTOL-MYERS SQUIBB COMPANY-17408691

PATIENT
  Age: 15 Year
  Sex: Female

DRUGS (3)
  1. ARIPIPRAZOLE [Suspect]
     Indication: SCHIZOPHRENIA
     Dosage: TABS
     Dates: start: 20121024, end: 20121202
  2. PARACETAMOL [Concomitant]
     Dates: start: 20120914
  3. IBUPROFEN [Concomitant]
     Dates: start: 20121128

REACTIONS (1)
  - Psychotic disorder [Not Recovered/Not Resolved]
